FAERS Safety Report 5587263-4 (Version None)
Quarter: 2008Q1

REPORT INFORMATION
  Report Type: 
  Country: None (occurrence: None)
  Receive Date: 20080110
  Receipt Date: 20080103
  Transmission Date: 20080703
  Serious: Yes (Hospitalization)
  Sender: FDA-Public Use
  Company Number: US-ELI_LILLY_AND_COMPANY-US200801000517

PATIENT
  Sex: Male

DRUGS (8)
  1. HUMULIN R [Suspect]
  2. HUMULIN N [Suspect]
  3. POTASSIUM CHLORIDE [Concomitant]
  4. LASIX [Concomitant]
  5. VALIUM [Concomitant]
  6. COREG [Concomitant]
  7. PEPCID [Concomitant]
  8. ZOCOR [Concomitant]

REACTIONS (2)
  - BLOOD GLUCOSE INCREASED [None]
  - CARDIAC OPERATION [None]
